FAERS Safety Report 4563714-9 (Version None)
Quarter: 2005Q1

REPORT INFORMATION
  Report Type: 
  Country: None (occurrence: None)
  Receive Date: 20050121
  Receipt Date: 20050107
  Transmission Date: 20050727
  Serious: Yes (Other)
  Sender: FDA-Public Use
  Company Number: USA-2004-0015948

PATIENT
  Age: 29 Year
  Sex: Female

DRUGS (9)
  1. MORPHINE SULFATE [Suspect]
     Indication: PAIN
     Dosage: 30 MG, PRN
  2. MS CONTIN [Concomitant]
  3. OXYCODONE HCL [Concomitant]
  4. LITHIUM (LITHIUM) [Concomitant]
  5. ZOLOFT [Concomitant]
  6. PREMARIN [Concomitant]
  7. AMBIEN [Concomitant]
  8. ADALAT [Concomitant]
  9. LORAZEPAM [Concomitant]

REACTIONS (7)
  - CONDITION AGGRAVATED [None]
  - DEPRESSION [None]
  - DIZZINESS [None]
  - DRUG INEFFECTIVE [None]
  - PAIN [None]
  - PANCREATITIS CHRONIC [None]
  - SUICIDAL IDEATION [None]
